FAERS Safety Report 6070817-9 (Version None)
Quarter: 2009Q1

REPORT INFORMATION
  Report Type: 
  Country: None (occurrence: None)
  Receive Date: 20090209
  Receipt Date: 20080730
  Transmission Date: 20090719
  Serious: No
  Sender: FDA-Public Use
  Company Number: A0740284A

PATIENT
  Age: 30 Year
  Sex: Female

DRUGS (3)
  1. PAROXETINE HCL [Suspect]
     Dosage: 10MG PER DAY
     Route: 048
     Dates: start: 20080615
  2. PAXIL CR [Suspect]
     Dosage: 10MG PER DAY
     Route: 048
     Dates: start: 20020101, end: 20040101
  3. VI-ZAC [Concomitant]

REACTIONS (5)
  - ANORGASMIA [None]
  - DRUG EXPOSURE DURING PREGNANCY [None]
  - INSOMNIA [None]
  - LIVE BIRTH [None]
  - NAUSEA [None]
